FAERS Safety Report 7685639-2 (Version None)
Quarter: 2011Q3

REPORT INFORMATION
  Report Type: 
  Country: None (occurrence: None)
  Receive Date: 20110815
  Receipt Date: 20110815
  Transmission Date: 20111222
  Serious: Yes (Hospitalization)
  Sender: FDA-Public Use
  Company Number: None

PATIENT
  Age: 62 Year
  Sex: Female

DRUGS (2)
  1. FOSINOPRIL SODIUM AND HYDROCHLOROTHIAZIDE [Suspect]
     Indication: HYPERTENSION
     Dosage: ONE DAILY ORAL
     Route: 048
     Dates: start: 20101001
  2. HYDROCHLOROTHIAZIDE [Suspect]
     Indication: BLOOD PRESSURE INCREASED
     Dosage: ONCE DAILY ORAL
     Route: 048
     Dates: start: 20101001

REACTIONS (6)
  - NAUSEA [None]
  - ABDOMINAL PAIN [None]
  - VOMITING [None]
  - OCULAR ICTERUS [None]
  - FATIGUE [None]
  - DEHYDRATION [None]
